FAERS Safety Report 10180135 (Version 1)
Quarter: 2014Q2

REPORT INFORMATION
  Report Type: Spontaneous
  Country: US (occurrence: US)
  Receive Date: 20140519
  Receipt Date: 20140519
  Transmission Date: 20141212
  Serious: No
  Sender: FDA-Public Use
  Company Number: US-AMGEN INC.-USASP2013078773

PATIENT
  Sex: Female

DRUGS (7)
  1. PROLIA [Suspect]
     Indication: PRODUCT USED FOR UNKNOWN INDICATION
     Dosage: UNK
     Route: 065
  2. VITAMIN C                          /00008001/ [Concomitant]
  3. VITAMIN D                          /00107901/ [Concomitant]
  4. VITAMIN E                          /00110501/ [Concomitant]
  5. METOPROLOL [Concomitant]
  6. AMLODIPINE [Concomitant]
  7. BABY ASPIRIN [Concomitant]

REACTIONS (3)
  - Pain in extremity [Unknown]
  - Back pain [Unknown]
  - Musculoskeletal pain [Unknown]
